FAERS Safety Report 17919508 (Version 3)
Quarter: 2020Q3

REPORT INFORMATION
  Report Type: Spontaneous
  Country: US (occurrence: US)
  Receive Date: 20200619
  Receipt Date: 20200818
  Transmission Date: 20201103
  Serious: Yes (Other)
  Sender: FDA-Public Use
  Company Number: US-GLAXOSMITHKLINE-US2020100543

PATIENT
  Sex: Female

DRUGS (2)
  1. GAVISCON [Suspect]
     Active Substance: ALUMINUM HYDROXIDE\MAGNESIUM CARBONATE
     Indication: PRODUCT USED FOR UNKNOWN INDICATION
     Dosage: UNK
  2. GAVISCON EXTRA STRENGTH [Suspect]
     Active Substance: ALUMINUM HYDROXIDE\MAGNESIUM CARBONATE
     Indication: PRODUCT USED FOR UNKNOWN INDICATION
     Dosage: UNK

REACTIONS (8)
  - Drug intolerance [Unknown]
  - Tooth loss [Unknown]
  - Tooth fracture [Unknown]
  - Wrong technique in product usage process [Unknown]
  - Drug dependence [Unknown]
  - Dysgeusia [Unknown]
  - Abdominal discomfort [Unknown]
  - Product complaint [Unknown]
